FAERS Safety Report 6043142-X (Version None)
Quarter: 2009Q1

REPORT INFORMATION
  Report Type: 
  Country: None (occurrence: None)
  Receive Date: 20090119
  Receipt Date: 20090109
  Transmission Date: 20090719
  Serious: Yes (Hospitalization)
  Sender: FDA-Public Use
  Company Number: US-ROCHE-607050

PATIENT
  Sex: Female

DRUGS (1)
  1. CYTOVENE IV [Suspect]
     Indication: CONGENITAL SKIN DISORDER
     Route: 042
     Dates: start: 20090108

REACTIONS (1)
  - RENAL FAILURE [None]
